FAERS Safety Report 5754738-4 (Version None)
Quarter: 2008Q2

REPORT INFORMATION
  Report Type: 
  Country: None (occurrence: None)
  Receive Date: 20080530
  Receipt Date: 20080521
  Transmission Date: 20081010
  Serious: Yes (Other)
  Sender: FDA-Public Use
  Company Number: US-PFIZER INC-2008044376

PATIENT
  Sex: Male

DRUGS (4)
  1. CADUET [Suspect]
     Indication: HYPERTENSION
     Dosage: TEXT:5/10MG
  2. CADUET [Suspect]
     Indication: BLOOD CHOLESTEROL
  3. OMEPRAZOLE [Concomitant]
     Indication: DYSPEPSIA
  4. AMBIEN [Concomitant]
     Indication: INSOMNIA

REACTIONS (7)
  - FATIGUE [None]
  - GAIT DISTURBANCE [None]
  - INSOMNIA [None]
  - LIMB INJURY [None]
  - MYALGIA [None]
  - PLANTAR FASCIITIS [None]
  - WEIGHT INCREASED [None]
